FAERS Safety Report 5284459-6 (Version None)
Quarter: 2007Q1

REPORT INFORMATION
  Report Type: 
  Country: None (occurrence: None)
  Receive Date: 20061227
  Receipt Date: 20061108
  Transmission Date: 20070707
  Serious: Yes (Other)
  Sender: FDA-Public Use
  Company Number: 13571070

PATIENT

DRUGS (2)
  1. EMSAM [Suspect]
     Dosage: TD
     Route: 062
  2. FOSAMAX [Concomitant]

REACTIONS (7)
  - APPLICATION SITE RASH [None]
  - BREATH ODOUR [None]
  - POLLAKIURIA [None]
  - PRURITUS [None]
  - STOMATITIS [None]
  - SWELLING FACE [None]
  - SWOLLEN TONGUE [None]
